FAERS Safety Report 8030614-1 (Version None)
Quarter: 2012Q1

REPORT INFORMATION
  Report Type: 
  Country: None (occurrence: None)
  Receive Date: 20120109
  Receipt Date: 20120104
  Transmission Date: 20120608
  Serious: Yes (Other)
  Sender: FDA-Public Use
  Company Number: DE-ROCHE-1027612

PATIENT
  Sex: Female

DRUGS (9)
  1. HERCEPTIN [Suspect]
     Indication: PRODUCT USED FOR UNKNOWN INDICATION
     Dates: start: 20100101, end: 20101001
  2. HYDROMORPHONE HCL [Concomitant]
  3. JODTHYROX [Concomitant]
  4. MOVIPREP [Concomitant]
  5. ASPIRIN [Concomitant]
     Dates: start: 20101014
  6. BISOPROLOL FUMARATE [Concomitant]
     Dates: start: 20101014
  7. CITALOPRAM [Concomitant]
  8. HERCEPTIN [Suspect]
     Dates: start: 20101101
  9. IBUPROFEN [Concomitant]

REACTIONS (3)
  - DIARRHOEA [None]
  - HYPERHIDROSIS [None]
  - CHILLS [None]
